FAERS Safety Report 6050124-0 (Version None)
Quarter: 2009Q1

REPORT INFORMATION
  Report Type: 
  Country: None (occurrence: None)
  Receive Date: 20090121
  Receipt Date: 20090108
  Transmission Date: 20090719
  Serious: Yes (Death, Hospitalization, Disabling, Other)
  Sender: FDA-Public Use
  Company Number: A-US2008-23035

PATIENT
  Age: 3 Year
  Sex: Female

DRUGS (13)
  1. TRACLEER [Suspect]
     Indication: PULMONARY HYPERTENSION
     Dosage: ORAL
     Route: 048
     Dates: start: 20081104
  2. MILRINONE (MILRINONE) [Concomitant]
  3. ALBUTEROL (SALBUTAMOL SULFATE) [Concomitant]
  4. ACTIVASE [Concomitant]
  5. SILDENAFIL CITRATE [Concomitant]
  6. ASPIRIN [Concomitant]
  7. FUROSEMIDE (FUROSEMIDE SODIUM) [Concomitant]
  8. SPIRONOLACTONE [Concomitant]
  9. LANSOPRAZOLE [Concomitant]
  10. CALCIUM CARBONATE (CALCIUM CARBONATE) [Concomitant]
  11. ACETAMINOPHEN [Concomitant]
  12. MIRALAX [Concomitant]
  13. ALDACTONE (POTASSIUM CANRENOATE) [Concomitant]

REACTIONS (42)
  - AGITATION [None]
  - ANAEMIA HAEMOLYTIC AUTOIMMUNE [None]
  - ANURIA [None]
  - AUTOIMMUNE DISORDER [None]
  - BLOOD CREATININE INCREASED [None]
  - BLOOD LACTIC ACID INCREASED [None]
  - BLOOD PRESSURE DECREASED [None]
  - BLOOD PRESSURE INCREASED [None]
  - BLOOD UREA INCREASED [None]
  - BRADYCARDIA [None]
  - BRAIN HERNIATION [None]
  - BRAIN OEDEMA [None]
  - COAGULOPATHY [None]
  - CYANOSIS [None]
  - DYSPNOEA [None]
  - ELECTROMECHANICAL DISSOCIATION [None]
  - FIBRINOUS BRONCHITIS [None]
  - HAEMOLYTIC ANAEMIA [None]
  - HAEMORRHAGE INTRACRANIAL [None]
  - HEPATIC FAILURE [None]
  - HYPERKALAEMIA [None]
  - HYPOXIA [None]
  - INCREASED BRONCHIAL SECRETION [None]
  - INTRACRANIAL PRESSURE INCREASED [None]
  - IRRITABILITY [None]
  - LYMPHOPENIA [None]
  - NEUTROPHIL COUNT DECREASED [None]
  - OXYGEN CONSUMPTION INCREASED [None]
  - PLATELET COUNT DECREASED [None]
  - POSTURING [None]
  - PRODUCTIVE COUGH [None]
  - PULMONARY OEDEMA [None]
  - PULSE ABSENT [None]
  - PUPIL FIXED [None]
  - PURULENT DISCHARGE [None]
  - RESPIRATORY FAILURE [None]
  - TACHYPNOEA [None]
  - TREMOR [None]
  - UNRESPONSIVE TO STIMULI [None]
  - UPPER RESPIRATORY TRACT INFECTION [None]
  - VENTRICULAR TACHYCARDIA [None]
  - WHITE BLOOD CELL COUNT DECREASED [None]
